FAERS Safety Report 7499453-4 (Version None)
Quarter: 2011Q2

REPORT INFORMATION
  Report Type: 
  Country: None (occurrence: None)
  Receive Date: 20110516
  Receipt Date: 20110418
  Transmission Date: 20111010
  Serious: Yes (Hospitalization, Other)
  Sender: FDA-Public Use
  Company Number: 2010SP062381

PATIENT
  Age: 32 Year
  Sex: Female
  Weight: 117.9352 kg

DRUGS (3)
  1. NUVARING [Suspect]
     Indication: CONTRACEPTION
     Dates: start: 20080101, end: 20080717
  2. NUVARING [Suspect]
     Indication: CONTRACEPTION
     Dates: start: 20070101
  3. ZOLOFT [Concomitant]

REACTIONS (18)
  - PREGNANCY [None]
  - THROMBOSIS [None]
  - NASAL CONGESTION [None]
  - RHINORRHOEA [None]
  - FEMALE STERILISATION [None]
  - ANTIPHOSPHOLIPID ANTIBODIES POSITIVE [None]
  - TREATMENT NONCOMPLIANCE [None]
  - PULMONARY THROMBOSIS [None]
  - ABORTION INCOMPLETE [None]
  - PULMONARY EMBOLISM [None]
  - DEPRESSION [None]
  - THROMBOPHLEBITIS SUPERFICIAL [None]
  - SYNCOPE [None]
  - HAEMORRHAGE [None]
  - FIBRIN D DIMER INCREASED [None]
  - PAPILLOMA VIRAL INFECTION [None]
  - CERVICAL DYSPLASIA [None]
  - ABORTION INDUCED [None]
